FAERS Safety Report 6642609-0 (Version None)
Quarter: 2010Q1

REPORT INFORMATION
  Report Type: 
  Country: None (occurrence: None)
  Receive Date: 20100319
  Receipt Date: 20100309
  Transmission Date: 20100710
  Serious: Yes (Life-Threatening, Hospitalization)
  Sender: FDA-Public Use
  Company Number: GB-SANOFI-AVENTIS-2010SA004057

PATIENT
  Sex: Female
  Weight: 64 kg

DRUGS (6)
  1. TRENTAL [Suspect]
     Route: 065
     Dates: start: 20091029, end: 20091101
  2. TRENTAL [Suspect]
     Route: 065
     Dates: start: 20091116, end: 20091129
  3. TRENTAL [Suspect]
     Route: 065
     Dates: start: 20091207, end: 20091210
  4. FLIXOTIDE EVOHALER [Concomitant]
     Indication: ASTHMA
     Dosage: DOSE:2 PUFF(S)
     Route: 055
     Dates: start: 20000101
  5. SALBUTAMOL [Concomitant]
     Indication: ASTHMA
     Dosage: DOSE:2 PUFF(S)
     Route: 055
  6. ACETAMINOPHEN AND CODEINE PHOSPHATE [Concomitant]
     Indication: HEADACHE
     Dosage: 1 TO 2 FOUR TIMES DAILY (30/500)
     Dates: start: 20090601

REACTIONS (6)
  - CHEST PAIN [None]
  - DYSPEPSIA [None]
  - HEADACHE [None]
  - MYOCARDIAL INFARCTION [None]
  - NAUSEA [None]
  - OFF LABEL USE [None]
